FAERS Safety Report 18104214 (Version 2)
Quarter: 2020Q3

REPORT INFORMATION
  Report Type: Report from Study
  Country: None (occurrence: US)
  Receive Date: 20200803
  Receipt Date: 20200924
  Transmission Date: 20201103
  Serious: Yes (Hospitalization, Other)
  Sender: FDA-Public Use
  Company Number: US-BIOVITRUM-2020US3210

PATIENT
  Age: 12 Year
  Sex: Male

DRUGS (2)
  1. KINERET [Suspect]
     Active Substance: ANAKINRA
     Indication: AUTOIMMUNE DISORDER
     Route: 058
     Dates: start: 20200508
  2. KINERET [Suspect]
     Active Substance: ANAKINRA
     Route: 058
     Dates: start: 20200602

REACTIONS (3)
  - Off label use [Not Recovered/Not Resolved]
  - COVID-19 [Unknown]
  - Cardiac failure [Unknown]

NARRATIVE: CASE EVENT DATE: 20200508
